FAERS Safety Report 10290779 (Version 2)
Quarter: 2014Q3

REPORT INFORMATION
  Report Type: Spontaneous
  Country: US (occurrence: US)
  Receive Date: 20140710
  Receipt Date: 20140924
  Transmission Date: 20150326
  Serious: Yes (Death)
  Sender: FDA-Public Use
  Company Number: US-PFIZER INC-2014190869

PATIENT
  Age: 55 Year
  Sex: Male
  Weight: 115.65 kg

DRUGS (23)
  1. LACTULOSE. [Concomitant]
     Active Substance: LACTULOSE
     Indication: BOWEL MOVEMENT IRREGULARITY
     Dosage: 30 ML,  Q 6 HR
     Route: 048
  2. DEXAMETHASONE. [Concomitant]
     Active Substance: DEXAMETHASONE
     Dosage: 1 MG, 1X/DAY
     Route: 048
  3. FUROSEMIDE. [Concomitant]
     Active Substance: FUROSEMIDE
     Dosage: 40 MG, DAILY
     Route: 048
  4. OXYGEN. [Concomitant]
     Active Substance: OXYGEN
     Dosage: 6 L, UNK ( LPM CONTINUOSLY)
  5. VESICARE [Concomitant]
     Active Substance: SOLIFENACIN SUCCINATE
     Dosage: 10 MG, 1X/DAY
     Route: 048
  6. DILAUDID [Concomitant]
     Active Substance: HYDROMORPHONE HYDROCHLORIDE
     Indication: PAIN
     Dosage: 8 MG, AS NEEDED (EVERY 3 HOURS)
     Route: 048
  7. FUROSEMIDE. [Concomitant]
     Active Substance: FUROSEMIDE
     Dosage: 40 MG, 1X/DAY
     Route: 048
  8. LACTULOSE. [Concomitant]
     Active Substance: LACTULOSE
     Dosage: 30 ML, DAILY
  9. COLACE [Concomitant]
     Active Substance: DOCUSATE SODIUM
     Indication: CONSTIPATION
     Dosage: 100 MG, 2X/DAY (AS NEEDED)
     Route: 048
  10. PRILOSEC [Concomitant]
     Active Substance: OMEPRAZOLE MAGNESIUM
     Dosage: 20 MG, DAILY
     Route: 048
  11. MIRALAX [Concomitant]
     Active Substance: POLYETHYLENE GLYCOL 3350
     Dosage: 17 G, DAILY
     Route: 048
  12. RESTORIL [Concomitant]
     Active Substance: TEMAZEPAM
     Indication: INSOMNIA
     Dosage: 15 MG, UNK (AT BEDTIME)
     Route: 048
  13. INLYTA [Suspect]
     Active Substance: AXITINIB
     Indication: RENAL CANCER
     Dosage: 5 MG, Q 12H
     Route: 048
     Dates: start: 20140210, end: 20140610
  14. ATIVAN [Concomitant]
     Active Substance: LORAZEPAM
     Dosage: 1 MG, UNK (AT BEDTIME)
     Route: 048
  15. COMBIVENT [Concomitant]
     Active Substance: ALBUTEROL SULFATE\IPRATROPIUM BROMIDE
     Dosage: 1 DF 20 MCG-100MCG/INH INHALATION AEROSOL) , 4X/DAY
     Route: 055
  16. FENTANYL. [Concomitant]
     Active Substance: FENTANYL
     Dosage: 2 DF, UNK (EVERY 72 HOUR) 75 MCG/HR
     Route: 061
  17. PAZOPANIB [Concomitant]
     Active Substance: PAZOPANIB
     Dosage: 800 MG, DAILY
     Route: 048
  18. POTASSIUM CHLORIDE. [Concomitant]
     Active Substance: POTASSIUM CHLORIDE
     Dosage: 10 MEQ CAPSULE, 2 CAPS. DAILY (WITH FOOD)
     Route: 048
  19. CLOBETASOL [Concomitant]
     Active Substance: CLOBETASOL
     Dosage: 1 DF, 3X/DAY
     Route: 061
  20. CYANOCOBALAMIN. [Concomitant]
     Active Substance: CYANOCOBALAMIN
     Dosage: 2500 UG, 1X/DAY
     Route: 060
  21. FENTANYL. [Concomitant]
     Active Substance: FENTANYL
     Dosage: 2 ML, SINGLE (50 MCG/HR )
     Route: 030
  22. GABAPENTIN. [Concomitant]
     Active Substance: GABAPENTIN
     Dosage: 600 MG, 3X/DAY
     Route: 048
  23. POTASSIUM CHLORIDE. [Concomitant]
     Active Substance: POTASSIUM CHLORIDE
     Dosage: 10 MEQ, DAILY
     Route: 048

REACTIONS (2)
  - Renal cancer [Fatal]
  - Disease progression [Fatal]

NARRATIVE: CASE EVENT DATE: 20140628
